FAERS Safety Report 10379851 (Version 1)
Quarter: 2014Q1

REPORT INFORMATION
  Report Type: Spontaneous
  Country: US (occurrence: None)
  Receive Date: 20140306
  Receipt Date: 20140306
  Transmission Date: 20141002
  Serious: Yes (Other)
  Sender: FDA-Public Use
  Company Number: 163-21880-13022570

PATIENT
  Age: 60 Year
  Sex: Male

DRUGS (25)
  1. REVLIMID (LENALIDOMIDE) (CAPSULES) [Suspect]
     Indication: PLASMA CELL MYELOMA
     Dosage: 15 MG, 21 IN 28 D, PO
     Route: 048
     Dates: start: 201011
  2. ASPIRIN (ACETYLSALICYLIC ACID) [Concomitant]
  3. BENZONATATE [Concomitant]
  4. GABAPENTIN [Concomitant]
  5. KLOR-CON M20 (POTASSIUM CHLORIDE) [Concomitant]
  6. LISINOPRIL-HYDROCHLOROTHIAZIDE) ZESTORETIC) [Concomitant]
  7. MEDROL (METHYLPRIDNISOLONE) [Concomitant]
  8. PREDNISONE [Concomitant]
  9. ZITHROMAX Z-PAK (AZITHROMYCIN) [Concomitant]
  10. ACETAMINOPHEN (PARACETAMOL) [Concomitant]
  11. AMITRIPTYLINE HCL (AMITRIPTYLINE HYDROCHLORIDE) [Concomitant]
  12. AZITHROMYCIN [Concomitant]
  13. COMPAZINE (PROCHLORPERAZINE EDISYLATE) [Concomitant]
  14. DEXTROSE (GLUCOSE INJECTION) [Concomitant]
  15. DIPHENHYDRAMINE HCL (DIPHENHYDRAMINE HYDROCHLORIDE) [Concomitant]
  16. GAMUNEX (IMMUNOGLOBULIN) [Concomitant]
  17. KEFLEX (CEFALEXIN MONOHYDRATE) [Concomitant]
  18. PRILOSEC (OMEPRAZOLE) [Concomitant]
  19. SODIUM CHLORIDE [Concomitant]
  20. VELCADE (BORTEZOMIB) [Concomitant]
  21. ZOMETA (ZOLEDRONIC ACID) [Concomitant]
  22. DECADRON (DEXAMETHASONE) [Concomitant]
  23. BACTRIM DS (BACTRIM) [Concomitant]
  24. LOPERAMIDE HCL (LOPERAMIDE HYDROCHLORIDE) [Concomitant]
  25. ZOFRAN (ONDANSETRON HYDROCHLORIDE) [Concomitant]

REACTIONS (1)
  - Cataract [None]
